FAERS Safety Report 8200567 (Version 5)
Quarter: 2013Q1

REPORT INFORMATION
  Report Type: Spontaneous
  Country: US (occurrence: US)
  Receive Date: 20111026
  Receipt Date: 20130121
  Transmission Date: 20140127
  Serious: Yes (Death, Hospitalization)
  Sender: FDA-Public Use
  Company Number: US-GLAXOSMITHKLINE-A0946822A

PATIENT
  Age: 63 Year
  Sex: Female
  Weight: 50 kg

DRUGS (15)
  1. FLOLAN [Suspect]
     Indication: PULMONARY ARTERIAL HYPERTENSION
     Dosage: 68NGKM CONTINUOUS
     Route: 065
     Dates: start: 20100527
  2. DIGOXIN [Concomitant]
     Indication: CARDIAC FAILURE
     Route: 048
  3. WELLBUTRIN SR [Concomitant]
     Indication: DEPRESSION
     Route: 048
  4. SPIRIVA [Concomitant]
  5. PROVENTIL HFA [Concomitant]
     Route: 055
  6. COUMADIN [Concomitant]
     Indication: ESSENTIAL HYPERTENSION
     Route: 048
  7. ALENDRONATE [Concomitant]
  8. VITAMIN D [Concomitant]
     Route: 048
  9. XANAX [Concomitant]
     Indication: ANXIETY
     Route: 048
  10. IMODIUM [Concomitant]
  11. POTASSIUM [Concomitant]
  12. LASIX [Concomitant]
     Indication: CARDIAC FAILURE
     Route: 048
  13. GABAPENTIN [Concomitant]
  14. PROMETHAZINE [Concomitant]
     Route: 048
  15. SYMBICORT [Concomitant]
     Route: 055

REACTIONS (5)
  - Pulmonary arterial hypertension [Fatal]
  - Right ventricular failure [Fatal]
  - Pneumonia [Unknown]
  - Oedema peripheral [Recovering/Resolving]
  - Pain [Recovering/Resolving]
